FAERS Safety Report 9674534 (Version 1)
Quarter: 2013Q4

REPORT INFORMATION
  Report Type: Spontaneous
  Country: US (occurrence: None)
  Receive Date: 20131105
  Receipt Date: 20131105
  Transmission Date: 20140711
  Serious: Yes (Other)
  Sender: FDA-Public Use
  Company Number: None

PATIENT
  Age: 35 Year
  Sex: Female
  Weight: 82.4 kg

DRUGS (1)
  1. METRONIDAZOLE [Suspect]
     Dosage: Q8 HOURS
     Route: 042
     Dates: start: 20131024, end: 20131027

REACTIONS (3)
  - Bradycardia [None]
  - Hypertension [None]
  - Headache [None]
